FAERS Safety Report 8608715 (Version 3)
Quarter: 2013Q2

REPORT INFORMATION
  Report Type: Spontaneous
  Country: KR (occurrence: KR)
  Receive Date: 20120608
  Receipt Date: 20130507
  Transmission Date: 20140414
  Serious: Yes (Hospitalization, Other)
  Sender: FDA-Public Use
  Company Number: KR-NAPPMUNDI-MAG-2012-0002185

PATIENT
  Age: 53 Year
  Sex: Male
  Weight: 65 kg

DRUGS (6)
  1. OXYCODONE HCL/NALOXONE HCL PR 20/10MG [Suspect]
     Indication: PAIN
     Dosage: 1 TABLET, UNK
     Route: 048
     Dates: start: 20120523, end: 20120524
  2. OXYCODONE HCL PR TABLET [Suspect]
     Indication: ANALGESIC THERAPY
     Dosage: 80 MG, BID
     Route: 048
     Dates: start: 20120523
  3. TYRENOL [Concomitant]
     Indication: ANALGESIC THERAPY
     Dosage: UNK, PRN
  4. CARDURA XL [Concomitant]
     Dosage: 4 MG, UNK
  5. SUNITINIB [Concomitant]
     Dosage: 37.5 MG, UNK
  6. DUROGESIC [Concomitant]
     Dosage: 200 MCG, UNK
     Route: 062
     Dates: start: 20120523

REACTIONS (3)
  - Confusional state [Recovered/Resolved]
  - Abdominal pain [Recovered/Resolved]
  - Hypertension [Recovered/Resolved]
